FAERS Safety Report 21166714 (Version 2)
Quarter: 2022Q3

REPORT INFORMATION
  Report Type: Spontaneous
  Country: JP (occurrence: JP)
  Receive Date: 20220803
  Receipt Date: 20220808
  Transmission Date: 20221027
  Serious: Yes (Hospitalization, Other)
  Sender: FDA-Public Use
  Company Number: JP-PFIZER INC-202201019161

PATIENT
  Age: 8 Decade
  Sex: Male

DRUGS (5)
  1. OXALIPLATIN [Suspect]
     Active Substance: OXALIPLATIN
     Indication: Gastric cancer recurrent
     Dosage: UNK, CYCLIC (10TH COURSE)
     Dates: start: 20220725
  2. OPDIVO [Suspect]
     Active Substance: NIVOLUMAB
     Indication: Gastric cancer recurrent
     Dosage: UNK, CYCLIC (10TH COURSE)
     Dates: start: 20220725
  3. LEVOLEUCOVORIN CALCIUM [Concomitant]
     Active Substance: LEVOLEUCOVORIN CALCIUM
     Indication: Gastric cancer recurrent
     Dosage: UNK, CYCLIC (10TH COURSE)
     Dates: start: 20220725
  4. FLUOROURACIL [Concomitant]
     Active Substance: FLUOROURACIL
     Indication: Gastric cancer recurrent
     Dosage: UNK, CYCLIC (10TH COURSE)
     Dates: start: 20220725
  5. COVID-19 VACCINE NOS [Concomitant]
     Active Substance: COVID-19 VACCINE NOS
     Dosage: UNK
     Dates: start: 202207, end: 202207

REACTIONS (7)
  - Blood pressure decreased [Unknown]
  - Chills [Unknown]
  - Renal impairment [Unknown]
  - Anuria [Unknown]
  - Hypersensitivity [Recovering/Resolving]
  - Urine output decreased [Unknown]
  - Hepatic function abnormal [Unknown]

NARRATIVE: CASE EVENT DATE: 20220725
